FAERS Safety Report 17478209 (Version 1)
Quarter: 2020Q1

REPORT INFORMATION
  Report Type: Spontaneous
  Country: GB (occurrence: GB)
  Receive Date: 20200229
  Receipt Date: 20200229
  Transmission Date: 20200409
  Serious: Yes (Death, Hospitalization)
  Sender: FDA-Public Use
  Company Number: GB-ACCORD-174203

PATIENT
  Age: 96 Year
  Sex: Female

DRUGS (6)
  1. AMLODIPINE [Concomitant]
     Active Substance: AMLODIPINE BESYLATE
  2. CLOPIDOGREL [Suspect]
     Active Substance: CLOPIDOGREL BISULFATE
     Indication: CEREBROVASCULAR ACCIDENT
     Route: 048
  3. MOVICOL [Concomitant]
     Active Substance: POLYETHYLENE GLYCOL 3350\POTASSIUM CHLORIDE\SODIUM BICARBONATE\SODIUM CHLORIDE
     Dosage: WHEN REQUIRED
  4. SENNA ALEXANDRINA [Concomitant]
     Active Substance: SENNA LEAF
  5. PARACETAMOL [Concomitant]
     Active Substance: ACETAMINOPHEN
     Dosage: WHEN REQUIRED
  6. GLYCEROL [Concomitant]
     Active Substance: GLYCERIN
     Dosage: WHEN REQUIRED

REACTIONS (3)
  - Melaena [Unknown]
  - Upper gastrointestinal haemorrhage [Fatal]
  - Haemoglobin decreased [Unknown]
